FAERS Safety Report 25717603 (Version 1)
Quarter: 2025Q3

REPORT INFORMATION
  Report Type: Spontaneous
  Country: JP (occurrence: JP)
  Receive Date: 20250822
  Receipt Date: 20250822
  Transmission Date: 20251020
  Serious: Yes (Other)
  Sender: PFIZER
  Company Number: JP-PFIZER INC-PV202500088263

PATIENT
  Age: 82 Year
  Sex: Male

DRUGS (2)
  1. ELREXFIO [Suspect]
     Active Substance: ELRANATAMAB-BCMM
     Indication: Plasma cell myeloma
     Route: 058
     Dates: start: 20250715
  2. ELREXFIO [Suspect]
     Active Substance: ELRANATAMAB-BCMM
     Dates: start: 2025

REACTIONS (2)
  - Cytokine release syndrome [Recovered/Resolved]
  - Orthopaedic procedure [Unknown]

NARRATIVE: CASE EVENT DATE: 20250101
